FAERS Safety Report 18206944 (Version 2)
Quarter: 2020Q3

REPORT INFORMATION
  Report Type: Spontaneous
  Country: JP (occurrence: JP)
  Receive Date: 20200828
  Receipt Date: 20200914
  Transmission Date: 20201103
  Serious: Yes (Disabling)
  Sender: FDA-Public Use
  Company Number: NVSJ2020JP006998

PATIENT
  Age: 86 Year
  Sex: Male

DRUGS (1)
  1. BEOVU [Suspect]
     Active Substance: BROLUCIZUMAB-DBLL
     Indication: AGE-RELATED MACULAR DEGENERATION
     Dosage: UNK
     Route: 031
     Dates: start: 20200612

REACTIONS (12)
  - Uveitis [Recovered/Resolved with Sequelae]
  - Retinal vasculitis [Recovered/Resolved with Sequelae]
  - Visual impairment [Unknown]
  - Keratic precipitates [Unknown]
  - Sudden visual loss [Unknown]
  - Retinal artery occlusion [Recovered/Resolved with Sequelae]
  - Eye inflammation [Recovering/Resolving]
  - Anterior chamber inflammation [Unknown]
  - Vitreous opacities [Unknown]
  - Retinal oedema [Unknown]
  - Vision blurred [Unknown]
  - Vitreous floaters [Unknown]

NARRATIVE: CASE EVENT DATE: 202006
